FAERS Safety Report 6338760-5 (Version None)
Quarter: 2009Q3

REPORT INFORMATION
  Report Type: 
  Country: None (occurrence: None)
  Receive Date: 20090828
  Receipt Date: 20090610
  Transmission Date: 20100115
  Serious: Yes (Hospitalization)
  Sender: FDA-Public Use
  Company Number: 1-18150497

PATIENT
  Sex: Female

DRUGS (1)
  1. QUALAQUIN [Suspect]
     Indication: MUSCLE SPASMS
     Dosage: ORAL
     Route: 048
     Dates: start: 19900101, end: 20080101

REACTIONS (3)
  - OFF LABEL USE [None]
  - THROMBOCYTOPENIA [None]
  - UNEVALUABLE EVENT [None]
